FAERS Safety Report 8912641 (Version 1)
Quarter: 2012Q4

REPORT INFORMATION
  Report Type: 
  Country: US (occurrence: US)
  Receive Date: 20121115
  Receipt Date: 20121115
  Transmission Date: 20130627
  Serious: Yes (Death, Hospitalization, Other)
  Sender: FDA-Public Use
  Company Number: US-ELI_LILLY_AND_COMPANY-US201211003974

PATIENT
  Sex: Male
  Weight: 84.1 kg

DRUGS (4)
  1. PRASUGREL HYDROCHLORIDE [Suspect]
     Indication: CORONARY ARTERY DISEASE
     Dosage: 10 mg, qd
     Route: 048
  2. ASPIRIN [Concomitant]
     Indication: CHEST PAIN
     Dosage: 81 mg, UNK
  3. ASPIRIN [Concomitant]
     Dosage: 325 mg, UNK
  4. HEPARIN SODIUM [Concomitant]
     Indication: CHEST PAIN
     Route: 042

REACTIONS (4)
  - Death [Fatal]
  - Haemorrhagic stroke [Not Recovered/Not Resolved]
  - Chest pain [Unknown]
  - Dissecting coronary artery aneurysm [Unknown]
